FAERS Safety Report 8781652 (Version 1)
Quarter: 2012Q4

REPORT INFORMATION
  Report Type: 
  Country: US (occurrence: US)
  Receive Date: 20120913
  Receipt Date: 20120913
  Transmission Date: 20130627
  Serious: No
  Sender: FDA-Public Use
  Company Number: US-VERTEX PHARMACEUTICAL INC.-AE-2012-006929

PATIENT
  Age: 50 Year
  Sex: Female
  Weight: 70.46 kg

DRUGS (11)
  1. INCIVEK [Suspect]
     Indication: HEPATITIS C
     Route: 048
     Dates: start: 20120507
  2. PEGASYS [Concomitant]
     Indication: HEPATITIS C
     Route: 058
     Dates: start: 20120507
  3. RIBAVIRIN [Concomitant]
     Indication: HEPATITIS C
     Route: 048
     Dates: start: 20120507
  4. OXYCODONE [Concomitant]
     Indication: BACK PAIN
  5. XANAX [Concomitant]
     Indication: ANXIETY
  6. SOMA [Concomitant]
     Indication: MUSCLE SPASMS
  7. AMBIEN [Concomitant]
     Route: 048
  8. PRESTIQ [Concomitant]
     Indication: ANTIDEPRESSANT THERAPY
  9. ABILIFY [Concomitant]
     Indication: ANTIDEPRESSANT THERAPY
  10. MILK THISTLE [Concomitant]
  11. FLASH FIGHTERS [Concomitant]

REACTIONS (11)
  - Miosis [Not Recovered/Not Resolved]
  - Dysarthria [Recovered/Resolved]
  - Stress [Not Recovered/Not Resolved]
  - Pain [Not Recovered/Not Resolved]
  - Somnolence [Not Recovered/Not Resolved]
  - Insomnia [Not Recovered/Not Resolved]
  - Fatigue [Not Recovered/Not Resolved]
  - Rash [Not Recovered/Not Resolved]
  - Frequent bowel movements [Unknown]
  - Dysgeusia [Not Recovered/Not Resolved]
  - Nausea [Unknown]
